FAERS Safety Report 8424437-9 (Version None)
Quarter: 2012Q2

REPORT INFORMATION
  Report Type: 
  Country: None (occurrence: None)
  Receive Date: 20120609
  Receipt Date: 20120529
  Transmission Date: 20120825
  Serious: Yes (Other)
  Sender: FDA-Public Use
  Company Number: JP-EISAI INC-E2090-02052-SPO-JP

PATIENT
  Sex: Male

DRUGS (13)
  1. MYSTAN [Concomitant]
     Route: 048
     Dates: start: 20120312, end: 20120301
  2. WARFARIN SODIUM [Concomitant]
     Indication: JUGULAR VEIN THROMBOSIS
     Route: 048
  3. HOKUNALIN [Concomitant]
     Indication: BRONCHITIS
     Dates: end: 20120301
  4. EPINASTINE HYDROCHLORIDE [Concomitant]
     Indication: DRUG ERUPTION
     Route: 048
     Dates: end: 20120322
  5. MIYA BM [Concomitant]
     Route: 048
     Dates: end: 20120308
  6. SODIUM BICARBONATE [Concomitant]
     Route: 048
     Dates: end: 20120322
  7. ALLOID G [Concomitant]
     Indication: GASTRITIS
     Route: 048
     Dates: end: 20120322
  8. LAMICTAL [Suspect]
     Indication: EPILEPSY
     Dates: start: 20120313, end: 20120322
  9. ASPARA POTASSIUM [Concomitant]
     Indication: HYPOKALAEMIA
     Route: 048
     Dates: end: 20120301
  10. BISOPROLOL FUMARATE [Concomitant]
     Route: 048
     Dates: end: 20120322
  11. DIAZEPAM [Concomitant]
     Indication: EPILEPSY
     Route: 048
     Dates: end: 20120301
  12. ZONISAMIDE [Suspect]
     Indication: EPILEPSY
     Route: 048
     Dates: start: 20111117, end: 20120323
  13. LAC-B [Concomitant]
     Route: 048
     Dates: start: 20120309, end: 20120301

REACTIONS (1)
  - AGRANULOCYTOSIS [None]
